FAERS Safety Report 4312663-X (Version None)
Quarter: 2004Q1

REPORT INFORMATION
  Report Type: 
  Country: None (occurrence: None)
  Receive Date: 20040302
  Receipt Date: 20031031
  Transmission Date: 20041129
  Serious: No
  Sender: FDA-Public Use
  Company Number: 701279

PATIENT
  Sex: Male

DRUGS (1)
  1. AMEVIVE [Suspect]
     Indication: PSORIASIS
     Dosage: 7.5 MG QW IV
     Route: 042
     Dates: start: 20030813, end: 20031030

REACTIONS (1)
  - CD4 LYMPHOCYTES DECREASED [None]
